FAERS Safety Report 19738734 (Version 1)
Quarter: 2021Q3

REPORT INFORMATION
  Report Type: Spontaneous
  Country: US (occurrence: US)
  Receive Date: 20210823
  Receipt Date: 20210823
  Transmission Date: 20211014
  Serious: Yes (Other)
  Sender: FDA-Public Use
  Company Number: US-TEVA-2021-US-1945956

PATIENT

DRUGS (1)
  1. OMEPRAZOLE GENERIC [Suspect]
     Active Substance: OMEPRAZOLE
     Route: 065

REACTIONS (5)
  - Drug hypersensitivity [Unknown]
  - Abdominal pain upper [Unknown]
  - Seizure [Unknown]
  - Constipation [Unknown]
  - Hiccups [Unknown]
